FAERS Safety Report 26028263 (Version 1)
Quarter: 2025Q4

REPORT INFORMATION
  Report Type: Spontaneous
  Country: US (occurrence: US)
  Receive Date: 20251111
  Receipt Date: 20251111
  Transmission Date: 20260118
  Serious: No
  Sender: Alora Pharma
  Company Number: US-ACELLA PHARMACEUTICALS, LLC-2025ALO02504

PATIENT
  Sex: Female
  Weight: 56.699 kg

DRUGS (1)
  1. CICLOPIROX [Suspect]
     Active Substance: CICLOPIROX
     Indication: Nail injury
     Dosage: APPLY NAIL LACQUER TO BOTH GREAT TOENAILS ONCE DAILY
     Dates: start: 202409

REACTIONS (4)
  - Onychomadesis [Recovered/Resolved]
  - Nail disorder [Not Recovered/Not Resolved]
  - Incorrect product administration duration [Not Recovered/Not Resolved]
  - Product container seal issue [Not Recovered/Not Resolved]
